FAERS Safety Report 25468247 (Version 1)
Quarter: 2025Q2

REPORT INFORMATION
  Report Type: Spontaneous
  Country: US (occurrence: None)
  Receive Date: 20250620
  Receipt Date: 20250620
  Transmission Date: 20250716
  Serious: Yes (Hospitalization)
  Sender: FDA-CTU
  Company Number: None

PATIENT
  Age: 66 Year
  Sex: Female

DRUGS (2)
  1. CIMZIA [Suspect]
     Active Substance: CERTOLIZUMAB PEGOL
     Dates: start: 20250227, end: 20250620
  2. PREGABALIN [Suspect]
     Active Substance: PREGABALIN

REACTIONS (2)
  - Adverse drug reaction [None]
  - Atrial fibrillation [None]

NARRATIVE: CASE EVENT DATE: 20250620
